FAERS Safety Report 10258401 (Version 2)
Quarter: 2014Q2

REPORT INFORMATION
  Report Type: Spontaneous
  Country: US (occurrence: US)
  Receive Date: 20140625
  Receipt Date: 20140625
  Transmission Date: 20141212
  Serious: No
  Sender: FDA-Public Use
  Company Number: US-HORIZON-VIM-0023-2014

PATIENT
  Age: 70 Year
  Sex: Female

DRUGS (2)
  1. VIMOVO [Suspect]
     Indication: PAIN IN EXTREMITY
     Dosage: 500MG NAPROXEN, 20MG ESOMEPRAZOLE
  2. BISOPROLOL [Concomitant]
     Indication: BLOOD PRESSURE

REACTIONS (5)
  - Dizziness [Recovered/Resolved]
  - Feeling abnormal [Recovered/Resolved]
  - Chills [Recovered/Resolved]
  - Restlessness [Recovered/Resolved]
  - Eye pain [Recovered/Resolved]
